FAERS Safety Report 7749787-0 (Version None)
Quarter: 2011Q3

REPORT INFORMATION
  Report Type: 
  Country: None (occurrence: None)
  Receive Date: 20110908
  Receipt Date: 20110825
  Transmission Date: 20111222
  Serious: Yes (Hospitalization, Disabling, Other)
  Sender: FDA-Public Use
  Company Number: 2010SP020085

PATIENT
  Age: 41 Year
  Sex: Female
  Weight: 58.0604 kg

DRUGS (12)
  1. BIOTIN [Concomitant]
  2. CENTRUM CARDIO [Concomitant]
  3. CEPHALEXIN [Concomitant]
  4. ATENOLOL [Concomitant]
  5. NUVARING [Suspect]
     Indication: MENSTRUAL DISORDER
     Dosage: VAG
     Route: 067
     Dates: start: 20070101, end: 20080401
  6. NUVARING [Suspect]
     Indication: CONTRACEPTION
     Dosage: VAG
     Route: 067
     Dates: start: 20070101, end: 20080401
  7. FISH OIL [Concomitant]
  8. NAPHCON [Concomitant]
  9. COUMADIN [Suspect]
     Indication: ANTICOAGULANT THERAPY
     Dates: start: 20080403
  10. ZOVIRAX [Concomitant]
  11. ASCORBIC ACID [Concomitant]
  12. ACIDPHILUS [Concomitant]

REACTIONS (19)
  - ASPIRATION [None]
  - ECONOMIC PROBLEM [None]
  - PNEUMONIA [None]
  - PULMONARY INFARCTION [None]
  - MUSCULOSKELETAL STIFFNESS [None]
  - EMOTIONAL DISTRESS [None]
  - CERVICOBRACHIAL SYNDROME [None]
  - LUNG NEOPLASM [None]
  - SCOLIOSIS [None]
  - BACK PAIN [None]
  - PULMONARY EMBOLISM [None]
  - FEAR [None]
  - PLEURITIC PAIN [None]
  - PAIN [None]
  - CARDIAC MURMUR [None]
  - MUSCULAR WEAKNESS [None]
  - MUSCLE SPASMS [None]
  - DECREASED ACTIVITY [None]
  - HEADACHE [None]
